FAERS Safety Report 7920197-6 (Version None)
Quarter: 2011Q4

REPORT INFORMATION
  Report Type: 
  Country: None (occurrence: None)
  Receive Date: 20111117
  Receipt Date: 20111108
  Transmission Date: 20120403
  Serious: Yes (Other)
  Sender: FDA-Public Use
  Company Number: GB-PFIZER INC-2011174220

PATIENT
  Age: 57 Year
  Sex: Female

DRUGS (1)
  1. LIPITOR [Suspect]
     Dosage: 10MG, UNK
     Route: 048

REACTIONS (8)
  - OROPHARYNGEAL PAIN [None]
  - RASH [None]
  - FEELING HOT [None]
  - ORAL CANDIDIASIS [None]
  - MALAISE [None]
  - DYSPHONIA [None]
  - DYSPHAGIA [None]
  - DYSGEUSIA [None]
